FAERS Safety Report 10077274 (Version 2)
Quarter: 2014Q2

REPORT INFORMATION
  Report Type: Spontaneous
  Country: US (occurrence: US)
  Receive Date: 20140414
  Receipt Date: 20140414
  Transmission Date: 20141212
  Serious: No
  Sender: FDA-Public Use
  Company Number: US-BANPHARM-20131229

PATIENT
  Age: 77 Year
  Sex: Female
  Weight: 62.6 kg

DRUGS (4)
  1. ALEVE LIQUID GELS 220 MG [Suspect]
     Indication: MYALGIA
     Dosage: 1 DF, ONCE,
     Route: 048
     Dates: start: 20130415, end: 20130415
  2. LOSARTAN [Concomitant]
  3. LORAZEPAM [Concomitant]
  4. LORATADINE [Concomitant]

REACTIONS (2)
  - Palpitations [Recovered/Resolved]
  - Heart rate irregular [Recovered/Resolved]
